FAERS Safety Report 20379274 (Version 1)
Quarter: 2022Q1

REPORT INFORMATION
  Report Type: Spontaneous
  Country: US (occurrence: US)
  Receive Date: 20220126
  Receipt Date: 20220126
  Transmission Date: 20220423
  Serious: Yes (Hospitalization)
  Sender: FDA-Public Use
  Company Number: US-EAGLE PHARMACEUTICALS, INC.-US-2021EAG000203

PATIENT
  Age: 53 Year
  Sex: Male
  Weight: 82.1 kg

DRUGS (7)
  1. BENDAMUSTINE HYDROCHLORIDE [Suspect]
     Active Substance: BENDAMUSTINE HYDROCHLORIDE
     Indication: Follicular lymphoma stage IV
     Dosage: 90 MG/M2, QD (2 DAYS IN EVERY CYCLE)
     Route: 042
     Dates: start: 20210714, end: 20210908
  2. EPCORITAMAB [Suspect]
     Active Substance: EPCORITAMAB
     Indication: Follicular lymphoma stage IV
     Dosage: 0.16 MG, SINGLE (PRIMING DOSE)
     Route: 058
     Dates: start: 20210714, end: 20210714
  3. EPCORITAMAB [Suspect]
     Active Substance: EPCORITAMAB
     Dosage: 0.8 MG, SINGLE (INTERMEDIATE DOSE)
     Route: 058
     Dates: start: 20210721, end: 20210721
  4. EPCORITAMAB [Suspect]
     Active Substance: EPCORITAMAB
     Dosage: 48 MG, WEEKLY (FULL DOSE)
     Route: 058
     Dates: start: 20210728, end: 20210908
  5. RITUXIMAB [Suspect]
     Active Substance: RITUXIMAB
     Indication: Follicular lymphoma stage IV
     Dosage: 375 MG/M2, Q4WEEKLY
     Route: 042
     Dates: start: 20210714, end: 20210908
  6. ZYRTEC                             /00884302/ [Concomitant]
     Indication: Premedication
     Dosage: 10 MG, SINGLE
     Route: 048
     Dates: start: 20210908, end: 20210908
  7. TYLENOL                            /00020001/ [Concomitant]
     Indication: Premedication
     Dosage: 650 MG, SINGLE
     Route: 048
     Dates: start: 20210908, end: 20210908

REACTIONS (2)
  - Fatigue [Not Recovered/Not Resolved]
  - Somnolence [Not Recovered/Not Resolved]

NARRATIVE: CASE EVENT DATE: 20210912
